FAERS Safety Report 8394133-5 (Version None)
Quarter: 2012Q2

REPORT INFORMATION
  Report Type: 
  Country: None (occurrence: None)
  Receive Date: 20120530
  Receipt Date: 20120518
  Transmission Date: 20120825
  Serious: Yes (Hospitalization, Other)
  Sender: FDA-Public Use
  Company Number: US-JNJFOC-20120517039

PATIENT
  Sex: Male

DRUGS (25)
  1. REVLIMID [Suspect]
     Indication: MULTIPLE MYELOMA
     Dosage: DAYS 1-14
     Route: 048
     Dates: start: 20110131, end: 20110213
  2. DIFLUCAN [Concomitant]
     Indication: ORAL CANDIDIASIS
     Dosage: 100/ 50 MG
     Route: 048
     Dates: start: 20110414, end: 20110101
  3. CALCIUM [Concomitant]
     Indication: SUPPLEMENTATION THERAPY
     Route: 048
     Dates: start: 20110101
  4. NEURONTIN [Concomitant]
     Indication: NEUROPATHY PERIPHERAL
     Route: 065
     Dates: start: 20091112
  5. DIFLUCAN [Concomitant]
     Indication: PYREXIA
     Dosage: 100/ 50 MG
     Route: 048
     Dates: start: 20110414, end: 20110101
  6. ALPHA LIPOIC ACID [Concomitant]
     Indication: NEUROPATHY PERIPHERAL
     Route: 048
     Dates: start: 20110131
  7. BRONCHODILATOR, NOS [Concomitant]
     Indication: DYSPNOEA
     Route: 065
     Dates: start: 20110215, end: 20110101
  8. DOXORUBICIN HCL [Suspect]
     Dosage: ON DAYS 1, 4, 8 AND 11
     Route: 042
     Dates: start: 20110131, end: 20110210
  9. VELCADE [Suspect]
     Indication: MULTIPLE MYELOMA
     Route: 065
  10. ZOMETA [Concomitant]
     Indication: PROPHYLAXIS
     Route: 042
     Dates: start: 20110131
  11. LEVOXYL [Concomitant]
     Route: 065
  12. BLOOD AND RELATED PRODUCTS [Concomitant]
     Dosage: 2 UNITS
     Route: 042
  13. SYNTHROID [Concomitant]
     Indication: HYPOTHYROIDISM
     Route: 048
     Dates: start: 20050101
  14. VITAMIN D [Concomitant]
     Indication: SUPPLEMENTATION THERAPY
     Dosage: 50000 UL, ONCE A DAY FOR 8 WEEKS
     Route: 048
     Dates: start: 20110303
  15. REVLIMID [Suspect]
     Route: 048
  16. DECADRON [Suspect]
     Indication: MULTIPLE MYELOMA
     Dosage: ON DAYS 1, 4, 8 AND 11
     Route: 065
     Dates: start: 20110131, end: 20110210
  17. VELCADE [Suspect]
     Dosage: ON DAYS 1, 4, 8 AND 11
     Route: 065
     Dates: start: 20110131, end: 20110213
  18. DECADRON [Suspect]
     Route: 065
  19. PROCRIT [Concomitant]
     Indication: ANAEMIA
     Dosage: 40,000 UNITS
     Route: 058
     Dates: start: 20110203
  20. ASPIRIN [Concomitant]
     Indication: PROPHYLAXIS
     Route: 048
     Dates: start: 20110131
  21. FLECAINIDE ACETATE [Concomitant]
     Indication: ATRIAL FIBRILLATION
     Route: 048
     Dates: start: 20110216, end: 20110216
  22. ACYCLOVIR [Concomitant]
     Indication: PROPHYLAXIS
     Route: 048
     Dates: start: 20110131
  23. CIPROFLOXACIN [Concomitant]
     Indication: PYREXIA
     Dosage: 10 DAYS
     Route: 048
  24. DOXORUBICIN HCL [Suspect]
     Indication: MULTIPLE MYELOMA
     Route: 042
  25. NORVASC [Concomitant]
     Indication: HYPERTENSION
     Route: 048
     Dates: start: 20110216, end: 20110101

REACTIONS (4)
  - PANCYTOPENIA [None]
  - INTERSTITIAL LUNG DISEASE [None]
  - ATRIAL FIBRILLATION [None]
  - HYPONATRAEMIA [None]
